FAERS Safety Report 9740704 (Version 1)
Quarter: 2013Q4

REPORT INFORMATION
  Report Type: Spontaneous
  Country: US (occurrence: US)
  Receive Date: 20131209
  Receipt Date: 20131209
  Transmission Date: 20140711
  Serious: No
  Sender: FDA-Public Use
  Company Number: US-BIOGENIDEC-2013BI099305

PATIENT
  Age: 65 Year
  Sex: Female

DRUGS (10)
  1. TECFIDERA [Suspect]
     Indication: MULTIPLE SCLEROSIS
     Route: 048
     Dates: start: 20130610
  2. ADVIL [Concomitant]
  3. CITRACAL PLUS [Concomitant]
  4. FLEXERIL [Concomitant]
  5. GLUCOPHAGE [Concomitant]
  6. LASIX [Concomitant]
  7. LISINOPRIL [Concomitant]
  8. LOTENSIN HCT [Concomitant]
  9. METOPROLOL TARTRATE [Concomitant]
  10. PRAVACHOL [Concomitant]

REACTIONS (1)
  - Alopecia [Unknown]
